FAERS Safety Report 19069024 (Version 5)
Quarter: 2022Q2

REPORT INFORMATION
  Report Type: Spontaneous
  Country: US (occurrence: US)
  Receive Date: 20210329
  Receipt Date: 20220630
  Transmission Date: 20220721
  Serious: Yes (Hospitalization, Disabling, Other)
  Sender: FDA-Public Use
  Company Number: US-SA-SAC20210325000440

PATIENT
  Age: 67 Year
  Sex: Female

DRUGS (1)
  1. AUBAGIO [Suspect]
     Active Substance: TERIFLUNOMIDE
     Indication: Multiple sclerosis
     Dosage: 14 MG, QD
     Route: 048
     Dates: start: 201804

REACTIONS (10)
  - Multiple sclerosis [Unknown]
  - Multiple sclerosis relapse [Not Recovered/Not Resolved]
  - Multiple sclerosis [Not Recovered/Not Resolved]
  - Kidney infection [Not Recovered/Not Resolved]
  - Gait disturbance [Recovering/Resolving]
  - Balance disorder [Recovering/Resolving]
  - Fall [Recovering/Resolving]
  - Dysstasia [Not Recovered/Not Resolved]
  - Headache [Unknown]
  - Drug ineffective [Unknown]

NARRATIVE: CASE EVENT DATE: 20180101
